FAERS Safety Report 9336681 (Version 1)
Quarter: 2013Q2

REPORT INFORMATION
  Report Type: Spontaneous
  Country: IT (occurrence: IT)
  Receive Date: 20130607
  Receipt Date: 20130607
  Transmission Date: 20140414
  Serious: Yes (Hospitalization)
  Sender: FDA-Public Use
  Company Number: PHHY2013IT057546

PATIENT
  Sex: Female

DRUGS (3)
  1. TAREG [Suspect]
     Indication: HYPERTENSION
     Dosage: 2 DF, (160 MG) DAILY
     Route: 048
     Dates: start: 20120101, end: 20130502
  2. CARDIOASPIRIN [Concomitant]
     Dosage: 100 MG
  3. MAALOX [Concomitant]
     Indication: GASTRITIS
     Dosage: 400/400 MG

REACTIONS (1)
  - Hyponatraemia [Unknown]
